FAERS Safety Report 23826696 (Version 2)
Quarter: 2024Q2

REPORT INFORMATION
  Report Type: Spontaneous
  Country: CA (occurrence: CA)
  Receive Date: 20240507
  Receipt Date: 20240628
  Transmission Date: 20240716
  Serious: Yes (Other)
  Sender: FDA-Public Use
  Company Number: CA-PFIZER INC-202400060152

PATIENT
  Age: 40 Year
  Sex: Female

DRUGS (1)
  1. ABRILADA [Suspect]
     Active Substance: ADALIMUMAB-AFZB
     Indication: Hidradenitis
     Dosage: 1 DF, WEEK 0 - 160 MG, WEEK 2 - 80 MG, THEN 40 MG EVERY WEEK STARTING WEEK 4 - PREFILLED PEN
     Route: 058
     Dates: start: 20231103

REACTIONS (7)
  - Wrist fracture [Recovering/Resolving]
  - Sensitive skin [Unknown]
  - Dermatitis contact [Unknown]
  - Pruritus [Unknown]
  - Erythema [Unknown]
  - Urticaria [Unknown]
  - Scratch [Unknown]

NARRATIVE: CASE EVENT DATE: 20240101
